FAERS Safety Report 14601745 (Version 1)
Quarter: 2018Q1

REPORT INFORMATION
  Report Type: Report from Study
  Country: None (occurrence: DE)
  Receive Date: 20180306
  Receipt Date: 20180306
  Transmission Date: 20180509
  Serious: Yes (Hospitalization)
  Sender: FDA-Public Use
  Company Number: DE-ABBVIE-18K-062-2272077-00

PATIENT
  Age: 55 Year
  Sex: Female
  Weight: 85 kg

DRUGS (12)
  1. RAMIPRIL. [Concomitant]
     Active Substance: RAMIPRIL
     Indication: PRODUCT USED FOR UNKNOWN INDICATION
     Dosage: 5 MG / 12.5 MG
     Dates: start: 201405
  2. TILIDINE [Concomitant]
     Active Substance: TILIDINE
     Indication: PRODUCT USED FOR UNKNOWN INDICATION
     Dosage: IF REQUIRED
     Dates: start: 2013
  3. NOVAMIN (PROCHLORPERAZINE MALEATE) [Concomitant]
     Active Substance: PROCHLORPERAZINE MALEATE
     Indication: PRODUCT USED FOR UNKNOWN INDICATION
     Dosage: IF REQUIRED AT NIGHT
     Dates: start: 2014
  4. HUMIRA [Suspect]
     Active Substance: ADALIMUMAB
     Indication: PSORIASIS
  5. NOVAMIN (PROCHLORPERAZINE MALEATE) [Concomitant]
     Active Substance: PROCHLORPERAZINE MALEATE
     Indication: PRODUCT USED FOR UNKNOWN INDICATION
     Dates: start: 2014
  6. METHOTREXATE. [Concomitant]
     Active Substance: METHOTREXATE
     Indication: PRODUCT USED FOR UNKNOWN INDICATION
  7. HUMIRA [Suspect]
     Active Substance: ADALIMUMAB
     Indication: PSORIASIS
  8. CELEBREX [Concomitant]
     Active Substance: CELECOXIB
     Indication: PRODUCT USED FOR UNKNOWN INDICATION
     Dates: start: 2010
  9. BISOPROLOL [Concomitant]
     Active Substance: BISOPROLOL
     Indication: PRODUCT USED FOR UNKNOWN INDICATION
     Dates: start: 201405
  10. FOLIC ACID. [Concomitant]
     Active Substance: FOLIC ACID
     Indication: PRODUCT USED FOR UNKNOWN INDICATION
  11. HUMIRA [Suspect]
     Active Substance: ADALIMUMAB
     Indication: ANKYLOSING SPONDYLITIS
     Route: 058
     Dates: start: 20150311
  12. HUMIRA [Suspect]
     Active Substance: ADALIMUMAB
     Indication: ANKYLOSING SPONDYLITIS
     Route: 058
     Dates: end: 201711

REACTIONS (4)
  - Nasopharyngitis [Recovering/Resolving]
  - Cough [Recovered/Resolved]
  - Rhinitis [Recovering/Resolving]
  - Surgical failure [Recovered/Resolved]

NARRATIVE: CASE EVENT DATE: 201711
